FAERS Safety Report 17012442 (Version 7)
Quarter: 2024Q3

REPORT INFORMATION
  Report Type: Report from Study
  Country: EG (occurrence: EG)
  Receive Date: 20191108
  Receipt Date: 20240902
  Transmission Date: 20241017
  Serious: Yes (Other)
  Sender: ROCHE
  Company Number: EG-ROCHE-2456990

PATIENT
  Age: 43 Year
  Sex: Female
  Weight: 100.0 kg

DRUGS (2)
  1. OCREVUS [Suspect]
     Active Substance: OCRELIZUMAB
     Indication: Multiple sclerosis
     Dosage: NA
     Route: 042
     Dates: start: 20191017
  2. OCREVUS [Suspect]
     Active Substance: OCRELIZUMAB
     Route: 042
     Dates: start: 20200812

REACTIONS (22)
  - Laryngospasm [Recovered/Resolved]
  - Nasal obstruction [Recovered/Resolved]
  - Rash [Recovered/Resolved]
  - Limb discomfort [Recovered/Resolved]
  - Ligament sprain [Not Recovered/Not Resolved]
  - Pyrexia [Not Recovered/Not Resolved]
  - Oropharyngeal pain [Not Recovered/Not Resolved]
  - Sinusitis [Not Recovered/Not Resolved]
  - Chills [Not Recovered/Not Resolved]
  - Gait disturbance [Recovered/Resolved]
  - Discomfort [Not Recovered/Not Resolved]
  - Nasopharyngitis [Not Recovered/Not Resolved]
  - Oedema peripheral [Not Recovered/Not Resolved]
  - Ligament rupture [Not Recovered/Not Resolved]
  - Therapy interrupted [Unknown]
  - Restless legs syndrome [Not Recovered/Not Resolved]
  - Back pain [Not Recovered/Not Resolved]
  - Pain in extremity [Not Recovered/Not Resolved]
  - Weight increased [Not Recovered/Not Resolved]
  - Coronavirus infection [Recovered/Resolved]
  - Drug withdrawal syndrome [Not Recovered/Not Resolved]
  - Oedema peripheral [Not Recovered/Not Resolved]

NARRATIVE: CASE EVENT DATE: 20201101
